FAERS Safety Report 5172424-9 (Version None)
Quarter: 2006Q4

REPORT INFORMATION
  Report Type: 
  Country: None (occurrence: None)
  Receive Date: 20061213
  Receipt Date: 20060815
  Transmission Date: 20070319
  Serious: No
  Sender: FDA-Public Use
  Company Number: US-AMGEN-KDL190190

PATIENT
  Sex: Female

DRUGS (7)
  1. ENBREL [Suspect]
     Indication: PSORIATIC ARTHROPATHY
     Route: 058
     Dates: start: 20060515
  2. ENBREL [Suspect]
     Indication: OSTEOARTHRITIS
  3. ARAVA [Concomitant]
     Route: 048
     Dates: start: 20050101
  4. METHOTREXATE [Concomitant]
     Route: 048
     Dates: start: 20060801
  5. CELEBREX [Concomitant]
     Dates: start: 20060206
  6. HYDROCODONE [Concomitant]
     Dates: start: 20060303
  7. REMICADE [Concomitant]

REACTIONS (1)
  - RASH GENERALISED [None]
